FAERS Safety Report 26134989 (Version 1)
Quarter: 2025Q4

REPORT INFORMATION
  Report Type: Report from Study
  Country: US (occurrence: None)
  Receive Date: 20251209
  Receipt Date: 20251209
  Transmission Date: 20260117
  Serious: Yes (Other)
  Sender: UCB
  Company Number: US-UCBSA-2025041567

PATIENT
  Age: 18 Year
  Weight: 52.2 kg

DRUGS (5)
  1. FENFLURAMINE [Suspect]
     Active Substance: FENFLURAMINE
     Indication: Lennox-Gastaut syndrome
     Dosage: 6 MILLILITER, 2X/DAY (BID)
  2. FENFLURAMINE [Suspect]
     Active Substance: FENFLURAMINE
     Dosage: 26.4 MILLIGRAM
  3. FENFLURAMINE [Suspect]
     Active Substance: FENFLURAMINE
     Dosage: 6 MILLILITER, 2X/DAY (BID)
  4. FENFLURAMINE [Suspect]
     Active Substance: FENFLURAMINE
     Dosage: 3 MILLILITER, 3X/DAY (TID)
  5. FENFLURAMINE [Suspect]
     Active Substance: FENFLURAMINE
     Dosage: 19.8 MG/DAY

REACTIONS (7)
  - Pulmonary artery dilatation [Recovering/Resolving]
  - Right ventricular dilatation [Not Recovered/Not Resolved]
  - Ventricular hypokinesia [Unknown]
  - Interventricular septum rupture [Not Recovered/Not Resolved]
  - Somnolence [Not Recovered/Not Resolved]
  - Left ventricular dysfunction [Unknown]
  - Off label use [Unknown]
